FAERS Safety Report 12645894 (Version 2)
Quarter: 2016Q3

REPORT INFORMATION
  Report Type: Spontaneous
  Country: US (occurrence: US)
  Receive Date: 20160811
  Receipt Date: 20160902
  Transmission Date: 20161109
  Serious: Yes (Other)
  Sender: FDA-Public Use
  Company Number: US-LUNDBECK-DKLU2017417

PATIENT
  Age: 64 Year
  Sex: Male

DRUGS (1)
  1. ONFI [Suspect]
     Active Substance: CLOBAZAM
     Indication: PARTIAL SEIZURES
     Route: 048
     Dates: start: 201606

REACTIONS (2)
  - Drug withdrawal convulsions [Unknown]
  - Intentional underdose [Unknown]

NARRATIVE: CASE EVENT DATE: 201607
